FAERS Safety Report 8612830-0 (Version None)
Quarter: 2012Q3

REPORT INFORMATION
  Report Type: 
  Country: None (occurrence: None)
  Receive Date: 20120822
  Receipt Date: 20120229
  Transmission Date: 20120928
  Serious: No
  Sender: FDA-Public Use
  Company Number: US-ASTRAZENECA-2011SE02216

PATIENT
  Age: 68 Year
  Sex: Female

DRUGS (20)
  1. TIZANIDINE HYDROCHLORIDE [Concomitant]
  2. VITAMIN D [Concomitant]
  3. PROZAC [Concomitant]
  4. HYDROCORTISONE [Concomitant]
  5. EPIPEN [Concomitant]
  6. OXYGEN [Concomitant]
  7. NEXIUM [Suspect]
     Route: 048
  8. TRAZODONE HYDROCHLORIDE [Concomitant]
  9. RECLAST [Concomitant]
     Dosage: UNKNOWN DOSE YEARLY
  10. SINGULAIR [Concomitant]
  11. ZYRTEC [Concomitant]
  12. CLONAZEPAM [Concomitant]
  13. ALLERGY INJECTION [Concomitant]
     Dosage: UNKNOWN DOSE WEEKLY
  14. SYMBICORT [Suspect]
     Indication: ASTHMA
     Dosage: 160/4.5 2 PUFFS TWO TIMES A DAY
     Route: 055
     Dates: start: 20080901
  15. BUPIRION [Concomitant]
  16. CALCIUM [Concomitant]
  17. SYMBICORT [Suspect]
     Indication: CHRONIC OBSTRUCTIVE PULMONARY DISEASE
     Dosage: 160/4.5 2 PUFFS TWO TIMES A DAY
     Route: 055
     Dates: start: 20080901
  18. HYZAAR [Concomitant]
     Dosage: 50-12.5 MG ONE IN THE MORNING
  19. HYDROCORTISONE [Concomitant]
  20. ALBUTEROL [Concomitant]
     Dosage: UNKNOWN DOSE AS REQUIRED
     Route: 055

REACTIONS (5)
  - DRUG DOSE OMISSION [None]
  - CHRONIC OBSTRUCTIVE PULMONARY DISEASE [None]
  - GASTRIC DISORDER [None]
  - ASTHMA [None]
  - DEMENTIA ALZHEIMER'S TYPE [None]
